FAERS Safety Report 8743026 (Version 2)
Quarter: 2012Q4

REPORT INFORMATION
  Report Type: Report from Study
  Country: US (occurrence: US)
  Receive Date: 20120824
  Receipt Date: 20120831
  Transmission Date: 20130627
  Serious: Yes (Other)
  Sender: FDA-Public Use
  Company Number: US-ABBOTT-12P-163-0970026-00

PATIENT
  Age: 36 Year
  Sex: Female

DRUGS (4)
  1. NORVIR TABLETS [Suspect]
     Indication: ANTIRETROVIRAL THERAPY
     Dosage: Daily
     Route: 048
  2. VIREAD [Suspect]
     Indication: ANTIRETROVIRAL THERAPY
     Route: 048
  3. EPIVIR [Suspect]
     Indication: ANTIRETROVIRAL THERAPY
     Route: 048
  4. REYATAZ [Suspect]
     Indication: ANTIRETROVIRAL THERAPY
     Route: 048

REACTIONS (1)
  - Abortion induced [Unknown]
